FAERS Safety Report 4294284-0 (Version None)
Quarter: 2004Q1

REPORT INFORMATION
  Report Type: 
  Country: None (occurrence: None)
  Receive Date: 20040211
  Receipt Date: 20040204
  Transmission Date: 20041129
  Serious: Yes (Death)
  Sender: FDA-Public Use
  Company Number: 2004JP000187

PATIENT
  Age: 37 Year
  Sex: Male

DRUGS (3)
  1. PROGRAF [Suspect]
     Dates: start: 20010101, end: 20020618
  2. MYCOPHENOLATE MOFETIL (MYCOPHENOLOATE MOFETIL) [Concomitant]
  3. PREDNISOLONE [Concomitant]

REACTIONS (14)
  - ANURIA [None]
  - BACK PAIN [None]
  - COMPLICATIONS OF TRANSPLANT SURGERY [None]
  - HAEMODIALYSIS [None]
  - HYPOAESTHESIA [None]
  - LUNG NEOPLASM [None]
  - LYMPHADENOPATHY [None]
  - MALAISE [None]
  - NEPHROPATHY [None]
  - PAIN [None]
  - PYREXIA [None]
  - RENAL INTERSTITIAL FIBROSIS [None]
  - TENDERNESS [None]
  - TRANSITIONAL CELL CARCINOMA [None]
